FAERS Safety Report 8887500 (Version 2)
Quarter: 2013Q3

REPORT INFORMATION
  Report Type: Spontaneous
  Country: FR (occurrence: None)
  Receive Date: 20121031
  Receipt Date: 20130823
  Transmission Date: 20140515
  Serious: Yes (Death)
  Sender: FDA-Public Use
  Company Number: FR-025714

PATIENT
  Sex: 0

DRUGS (3)
  1. BUSULFAN [Suspect]
     Indication: NEUROBLASTOMA
  2. MELPHALAN [Suspect]
     Indication: NEUROBLASTOMA
  3. THIOTEPA [Suspect]
     Indication: NEUROBLASTOMA
     Dosage: 300MGM2 PER DAY (300 MG/M2, 1 IN 1 DAYS, UNKNOWN

REACTIONS (1)
  - Pulmonary alveolar haemorrhage [None]
